FAERS Safety Report 15826801 (Version 6)
Quarter: 2019Q1

REPORT INFORMATION
  Report Type: Report from Study
  Country: GB (occurrence: GB)
  Receive Date: 20190115
  Receipt Date: 20190214
  Transmission Date: 20190417
  Serious: Yes (Death)
  Sender: FDA-Public Use
  Company Number: GB-PFIZER INC-2019017257

PATIENT
  Sex: Male

DRUGS (6)
  1. PHENOBARBITONE [PHENOBARBITAL] [Interacting]
     Active Substance: PHENOBARBITAL
     Dosage: UNK
  2. IBUPROFEN. [Interacting]
     Active Substance: IBUPROFEN
     Dosage: UNK
  3. GABAPENTIN. [Suspect]
     Active Substance: GABAPENTIN
     Dosage: UNK
  4. SODIUM OXYBATE. [Interacting]
     Active Substance: SODIUM OXYBATE
     Dosage: UNK
  5. DIAZEPAM. [Interacting]
     Active Substance: DIAZEPAM
     Dosage: UNK
  6. AMPHETAMINE [Interacting]
     Active Substance: AMPHETAMINE
     Dosage: UNK

REACTIONS (2)
  - Toxicity to various agents [Fatal]
  - Drug interaction [Fatal]
